FAERS Safety Report 21302376 (Version 3)
Quarter: 2022Q4

REPORT INFORMATION
  Report Type: Spontaneous
  Country: JP (occurrence: JP)
  Receive Date: 20220907
  Receipt Date: 20221007
  Transmission Date: 20230113
  Serious: Yes (Other)
  Sender: FDA-Public Use
  Company Number: JP-JNJFOC-20220911742

PATIENT
  Age: 84 Year
  Sex: Male
  Weight: 60 kg

DRUGS (1)
  1. ERLEADA [Suspect]
     Active Substance: APALUTAMIDE
     Indication: Hormone-refractory prostate cancer
     Route: 048
     Dates: start: 20210402, end: 20210611

REACTIONS (1)
  - Pneumonia aspiration [Unknown]

NARRATIVE: CASE EVENT DATE: 20210101
